FAERS Safety Report 25808258 (Version 1)
Quarter: 2025Q3

REPORT INFORMATION
  Report Type: Report from Study
  Country: GB (occurrence: GB)
  Receive Date: 20250916
  Receipt Date: 20250916
  Transmission Date: 20251021
  Serious: Yes (Other)
  Sender: TEVA
  Company Number: GB-TEVA-VS-3372361

PATIENT
  Age: 39 Year
  Sex: Female

DRUGS (1)
  1. AJOVY [Suspect]
     Active Substance: FREMANEZUMAB-VFRM
     Indication: Migraine
     Dosage: LAST INJECTED ON 2025-09-04,225MG/1.5 ML
     Route: 058

REACTIONS (6)
  - Syncope [Recovered/Resolved]
  - Malaise [Recovered/Resolved]
  - Device physical property issue [Unknown]
  - Loss of consciousness [Recovered/Resolved]
  - Product storage error [Unknown]
  - Device malfunction [Unknown]

NARRATIVE: CASE EVENT DATE: 20250808
